FAERS Safety Report 6935054-1 (Version None)
Quarter: 2010Q3

REPORT INFORMATION
  Report Type: 
  Country: None (occurrence: None)
  Receive Date: 20100822
  Receipt Date: 20100810
  Transmission Date: 20110219
  Serious: Yes (Death)
  Sender: FDA-Public Use
  Company Number: PHHY2010NL47070

PATIENT
  Age: 78 Year
  Sex: Male
  Weight: 75 kg

DRUGS (6)
  1. ALISKIREN ALI+TAB [Suspect]
     Indication: HYPERTENSION
     Dosage: 150 MG DAILY
     Route: 048
     Dates: start: 20100414
  2. ALISKIREN ALI+TAB [Suspect]
     Indication: MYOCARDIAL INFARCTION
  3. BETA BLOCKING AGENTS [Concomitant]
     Dosage: UNK
  4. DIURETICS [Concomitant]
     Indication: HYPERTENSION
     Dosage: UNK
     Dates: start: 20030101
  5. HYDROCHLOROTHIAZIDE [Concomitant]
     Indication: HYPERTENSION
     Dosage: UNK
     Dates: start: 20030101
  6. ASCODEEN [Concomitant]
     Indication: CORONARY ARTERY BYPASS
     Dosage: 100 MG
     Dates: start: 19960101

REACTIONS (1)
  - DEATH [None]
